FAERS Safety Report 7586090-6 (Version None)
Quarter: 2011Q3

REPORT INFORMATION
  Report Type: 
  Country: None (occurrence: None)
  Receive Date: 20110701
  Receipt Date: 20110623
  Transmission Date: 20111222
  Serious: Yes (Other)
  Sender: FDA-Public Use
  Company Number: CA-ABBOTT-11P-028-0710982-00

PATIENT
  Sex: Female
  Weight: 56.75 kg

DRUGS (2)
  1. HUMIRA [Suspect]
  2. HUMIRA [Suspect]
     Indication: CROHN'S DISEASE
     Route: 058
     Dates: start: 20070607, end: 20110613

REACTIONS (10)
  - IMPAIRED HEALING [None]
  - INFECTION [None]
  - RASH PAPULAR [None]
  - SUBCUTANEOUS ABSCESS [None]
  - NAUSEA [None]
  - ABSCESS LIMB [None]
  - INCREASED TENDENCY TO BRUISE [None]
  - HIDRADENITIS [None]
  - ERYTHEMA [None]
  - PAPULE [None]
